FAERS Safety Report 12757994 (Version 1)
Quarter: 2016Q3

REPORT INFORMATION
  Report Type: Spontaneous
  Country: US (occurrence: US)
  Receive Date: 20160919
  Receipt Date: 20160919
  Transmission Date: 20161109
  Serious: No
  Sender: FDA-Public Use
  Company Number: US-BAYER-2016-179914

PATIENT
  Age: 79 Year
  Sex: Male
  Weight: 68.27 kg

DRUGS (6)
  1. ALEVE [Suspect]
     Active Substance: NAPROXEN SODIUM
     Indication: PAIN
     Dosage: 1,UNK, AS NEEDED
     Route: 048
     Dates: start: 201609
  2. METOPROLOL. [Concomitant]
     Active Substance: METOPROLOL
  3. WARFARIN [Concomitant]
     Active Substance: WARFARIN
  4. LISINOPRIL. [Concomitant]
     Active Substance: LISINOPRIL
  5. AMIODARONE [Concomitant]
     Active Substance: AMIODARONE
  6. AMLODIPINE [Concomitant]
     Active Substance: AMLODIPINE BESYLATE

REACTIONS (2)
  - Wrong technique in product usage process [None]
  - Drug ineffective [None]
